FAERS Safety Report 13205152 (Version 2)
Quarter: 2018Q1

REPORT INFORMATION
  Report Type: Report from Study
  Country: CA (occurrence: CA)
  Receive Date: 20170209
  Receipt Date: 20180114
  Transmission Date: 20180508
  Serious: Yes (Other)
  Sender: FDA-Public Use
  Company Number: PHHY2017CA019222

PATIENT
  Sex: Female

DRUGS (1)
  1. ACLASTA [Suspect]
     Active Substance: ZOLEDRONIC ACID
     Indication: OSTEOPOROSIS
     Dosage: 5 MG, UNK
     Route: 042
     Dates: start: 20170130, end: 20170130

REACTIONS (6)
  - Pain in extremity [Unknown]
  - Photopsia [Unknown]
  - Eye pain [Unknown]
  - Retinal detachment [Unknown]
  - Vitreous disorder [Unknown]
  - Malaise [Unknown]
